FAERS Safety Report 21694170 (Version 1)
Quarter: 2022Q4

REPORT INFORMATION
  Report Type: Spontaneous
  Country: CZ (occurrence: CZ)
  Receive Date: 20221207
  Receipt Date: 20221207
  Transmission Date: 20230112
  Serious: Yes (Other)
  Sender: FDA-Public Use
  Company Number: CZ-TEVA-2022-CZ-2828794

PATIENT
  Age: 71 Year
  Sex: Male

DRUGS (3)
  1. CISPLATIN [Suspect]
     Active Substance: CISPLATIN
     Indication: Lung adenocarcinoma
     Dosage: 150 MG (4 CYCLES IN COMBINATION WITH PEMETREXED 1G)
     Route: 065
     Dates: start: 20160921, end: 20161124
  2. PEMETREXED [Suspect]
     Active Substance: PEMETREXED
     Indication: Lung adenocarcinoma
     Dosage: 1 G (4 CYCLES IN COMBINATION WITH CISPATIN 150 MG)
     Route: 065
     Dates: start: 20160921, end: 20161124
  3. PEMETREXED [Suspect]
     Active Substance: PEMETREXED
     Dosage: 1 G (16 CYCLES, GRADUAL DOSE REDUCTION )
     Route: 065
     Dates: start: 20160921, end: 20161124

REACTIONS (4)
  - Nephropathy toxic [Recovering/Resolving]
  - Renal failure [Recovering/Resolving]
  - Hepatic function abnormal [Unknown]
  - Hepatic lesion [Unknown]

NARRATIVE: CASE EVENT DATE: 20160101
